FAERS Safety Report 7215984-6 (Version None)
Quarter: 2011Q1

REPORT INFORMATION
  Report Type: 
  Country: None (occurrence: None)
  Receive Date: 20110107
  Receipt Date: 20101228
  Transmission Date: 20110831
  Serious: Yes (Other)
  Sender: FDA-Public Use
  Company Number: US-JNJFOC-20101208876

PATIENT
  Sex: Male
  Weight: 68.04 kg

DRUGS (3)
  1. STELARA [Suspect]
     Indication: PSORIASIS
     Route: 058
  2. LISINOPRIL [Concomitant]
     Indication: HYPERTENSION
  3. COLCHICINE [Concomitant]
     Indication: FAMILIAL MEDITERRANEAN FEVER

REACTIONS (1)
  - NEUTROPHIL COUNT DECREASED [None]
